FAERS Safety Report 9034855 (Version 1)
Quarter: 2013Q1

REPORT INFORMATION
  Report Type: Spontaneous
  Country: MX (occurrence: MX)
  Receive Date: 20130128
  Receipt Date: 20130128
  Transmission Date: 20140127
  Serious: Yes (Disabling, Other)
  Sender: FDA-Public Use
  Company Number: PHHY2013MX006571

PATIENT
  Sex: Female

DRUGS (3)
  1. EXFORGE [Suspect]
     Indication: HYPERTENSION
     Dosage: 1 DF (160 MG VALS+ 10 MG AMLO), DAILY
     Route: 048
  2. DABEX [Concomitant]
     Indication: BLOOD GLUCOSE ABNORMAL
     Dosage: 1 UNK, DAILY
  3. MICCIL [Concomitant]
     Indication: ANTIINFLAMMATORY THERAPY
     Dosage: 3 UKN, DAILY

REACTIONS (5)
  - Infection [Not Recovered/Not Resolved]
  - Musculoskeletal pain [Not Recovered/Not Resolved]
  - Gait disturbance [Not Recovered/Not Resolved]
  - Contusion [Not Recovered/Not Resolved]
  - Arthralgia [Not Recovered/Not Resolved]
